FAERS Safety Report 18469274 (Version 1)
Quarter: 2020Q4

REPORT INFORMATION
  Report Type: Spontaneous
  Country: US (occurrence: US)
  Receive Date: 20201105
  Receipt Date: 20201105
  Transmission Date: 20210114
  Serious: Yes (Other)
  Sender: FDA-Public Use
  Company Number: US-SA-2020SA306182

PATIENT

DRUGS (1)
  1. LANTUS SOLOSTAR [Suspect]
     Active Substance: INSULIN GLARGINE
     Dosage: 15 UNITS ONCE DAILY
     Route: 065
     Dates: start: 20180730

REACTIONS (2)
  - Macular degeneration [Unknown]
  - Visual impairment [Unknown]
